FAERS Safety Report 5746498-8 (Version None)
Quarter: 2008Q2

REPORT INFORMATION
  Report Type: 
  Country: None (occurrence: None)
  Receive Date: 20080522
  Receipt Date: 20080512
  Transmission Date: 20081010
  Serious: Yes (Other)
  Sender: FDA-Public Use
  Company Number: PHHY2008CN07634

PATIENT
  Sex: Male

DRUGS (3)
  1. SEBIVO [Suspect]
     Route: 048
  2. INTERFERON [Concomitant]
  3. PERIPHERAL NERVE NUTRITIONAL MEDICATIONS [Concomitant]

REACTIONS (2)
  - HYPOAESTHESIA [None]
  - NEURALGIA [None]
